FAERS Safety Report 7507520-1 (Version None)
Quarter: 2011Q2

REPORT INFORMATION
  Report Type: 
  Country: None (occurrence: None)
  Receive Date: 20110526
  Receipt Date: 20101209
  Transmission Date: 20111010
  Serious: No
  Sender: FDA-Public Use
  Company Number: US-MYLANLABS-2010S1019938

PATIENT
  Age: 48 Year
  Sex: Male
  Weight: 73.48 kg

DRUGS (7)
  1. GABAPENTIN [Concomitant]
     Route: 048
  2. ZOLPIDEM TARTRATE [Suspect]
     Route: 048
     Dates: start: 20100601
  3. FENTANYL [Concomitant]
     Route: 062
  4. ZOLPIDEM TARTRATE [Suspect]
     Route: 048
     Dates: start: 20100601
  5. XANAX [Concomitant]
     Route: 048
  6. ZOLPIDEM TARTRATE [Suspect]
     Indication: INSOMNIA
     Route: 048
     Dates: start: 20100101, end: 20100101
  7. ZOLPIDEM TARTRATE [Suspect]
     Route: 048
     Dates: start: 20100101, end: 20100101

REACTIONS (2)
  - ABNORMAL DREAMS [None]
  - SOMNOLENCE [None]
